FAERS Safety Report 6608721-7 (Version None)
Quarter: 2010Q1

REPORT INFORMATION
  Report Type: 
  Country: None (occurrence: None)
  Receive Date: 20100301
  Receipt Date: 20100219
  Transmission Date: 20100710
  Serious: Yes (Hospitalization, Other)
  Sender: FDA-Public Use
  Company Number: PHEH2010US02377

PATIENT
  Sex: Male
  Weight: 73.923 kg

DRUGS (2)
  1. GLEEVEC [Suspect]
     Indication: CHRONIC MYELOID LEUKAEMIA
     Dosage: 400 MG, QD
     Route: 048
     Dates: start: 20090311
  2. IMMUNOSUPPRESSANTS [Concomitant]
     Indication: RENAL TRANSPLANT

REACTIONS (4)
  - LOCALISED INFECTION [None]
  - NEUROPATHIC ARTHROPATHY [None]
  - OSTEOMYELITIS [None]
  - SURGERY [None]
